FAERS Safety Report 10148970 (Version 3)
Quarter: 2014Q2

REPORT INFORMATION
  Report Type: Report from Study
  Country: JP (occurrence: JP)
  Receive Date: 20140502
  Receipt Date: 20140509
  Transmission Date: 20141212
  Serious: Yes (Hospitalization)
  Sender: FDA-Public Use
  Company Number: JP-ROCHE-1384972

PATIENT
  Age: 49 Year
  Sex: Female
  Weight: 58 kg

DRUGS (7)
  1. TRASTUZUMAB EMTANSINE [Suspect]
     Indication: BREAST CANCER METASTATIC
     Route: 042
     Dates: start: 20140326
  2. CYMBALTA [Concomitant]
     Indication: CANCER PAIN
     Dosage: BEGINING OF DOSAGE DAY:SINGLE USE BEFORE BEGINING OF DOSAGE OF INVESTIGATIONAL AGENT
     Route: 048
  3. CALCICOL [Concomitant]
     Indication: HYPOCALCAEMIA
     Dosage: BEGINING OF DOSAGE DAY:SINGLE USE BEFORE BEGINING OF DOSAGE OF INVESTIGATIONAL AGENT
     Route: 048
  4. LYRICA [Concomitant]
     Indication: CANCER PAIN
     Dosage: BEGINING OF DOSAGE DAY:SINGLE USE BEFORE BEGINING OF DOSAGE OF INVESTIGATIONAL AGENT
     Route: 048
  5. OXINORM (JAPAN) [Concomitant]
     Indication: CANCER PAIN
     Dosage: BEGINING OF DOSAGE DAY:SINGLE USE BEFORE BEGINING OF DOSAGE OF INVESTIGATIONAL AGENT
     Route: 048
  6. FEROTYM [Concomitant]
     Indication: ANAEMIA
     Route: 048
  7. MAGNESIUM OXIDE [Concomitant]
     Indication: CONSTIPATION
     Dosage: BEGINING OF DOSAGE DAY:SINGLE USE BEFORE BEGINING OF DOSAGE OF INVESTIGATIONAL AGENT
     Route: 048

REACTIONS (2)
  - Dermatitis infected [Not Recovered/Not Resolved]
  - Malaise [Not Recovered/Not Resolved]
